FAERS Safety Report 10162190 (Version 1)
Quarter: 2014Q2

REPORT INFORMATION
  Report Type: Report from Study
  Country: CA (occurrence: CA)
  Receive Date: 20140509
  Receipt Date: 20140509
  Transmission Date: 20141212
  Serious: Yes (Other)
  Sender: FDA-Public Use
  Company Number: CA-ROCHE-1398198

PATIENT
  Sex: Female

DRUGS (11)
  1. RITUXAN [Suspect]
     Indication: RHEUMATOID ARTHRITIS
     Dosage: FREQUENCY:  DAY 1 AND DAY 15.
     Route: 042
     Dates: start: 20081016
  2. RITUXAN [Suspect]
     Dosage: FREQUENCY:  DAY 1 AND DAY 15
     Route: 042
     Dates: start: 20091123
  3. DIPHENHYDRAMINE HCL [Concomitant]
     Indication: PREMEDICATION
     Route: 048
     Dates: start: 20091123
  4. ACETAMINOPHEN [Concomitant]
     Indication: PREMEDICATION
     Route: 048
     Dates: start: 20091123
  5. METHYLPREDNISOLONE [Concomitant]
     Indication: PREMEDICATION
     Route: 042
     Dates: start: 20091123
  6. METHOTREXATE [Concomitant]
  7. ANTARA [Concomitant]
  8. ACID FOLIC [Concomitant]
  9. D-TABS [Concomitant]
  10. PANTOLOC [Concomitant]
  11. TYLENOL [Concomitant]

REACTIONS (1)
  - Tenosynovitis [Unknown]
